FAERS Safety Report 8644333 (Version 2)
Quarter: 2012Q4

REPORT INFORMATION
  Report Type: 
  Country: US (occurrence: US)
  Receive Date: 20120629
  Receipt Date: 20120928
  Transmission Date: 20130627
  Serious: Yes (Other)
  Sender: FDA-Public Use
  Company Number: US-ELI_LILLY_AND_COMPANY-US201206007018

PATIENT
  Sex: Male
  Weight: 78.01 kg

DRUGS (8)
  1. HUMALOG LISPRO [Suspect]
     Indication: DIABETES MELLITUS
     Dosage: UNK, prn
  2. ASPIRIN [Concomitant]
     Dosage: 81 mg, qd
  3. OMEGA-3 [Concomitant]
  4. HYDROCHLOROTHIAZIDE [Concomitant]
     Dosage: 25 mg, qd
  5. LIPITOR [Concomitant]
     Dosage: 40 mg, qd
  6. LISINOPRIL [Concomitant]
     Dosage: 40 mg, qd
  7. METFORMIN [Concomitant]
     Dosage: 1000 mg, qd
  8. LANTUS [Concomitant]
     Dosage: UNK, prn

REACTIONS (4)
  - Diabetic retinopathy [Not Recovered/Not Resolved]
  - Osteoarthritis [Not Recovered/Not Resolved]
  - Blood glucose increased [Unknown]
  - Incorrect dose administered [Unknown]
